FAERS Safety Report 6632978-X (Version None)
Quarter: 2010Q1

REPORT INFORMATION
  Report Type: 
  Country: None (occurrence: None)
  Receive Date: 20100312
  Receipt Date: 20100303
  Transmission Date: 20100710
  Serious: No
  Sender: FDA-Public Use
  Company Number: US-ABBOTT-10P-163-0630604-00

PATIENT
  Age: 6 Month
  Sex: Male

DRUGS (1)
  1. E.E.S. [Suspect]
     Indication: GASTROOESOPHAGEAL REFLUX DISEASE
     Route: 048
     Dates: start: 20100201, end: 20100301

REACTIONS (1)
  - EXPIRED DRUG ADMINISTERED [None]
